FAERS Safety Report 24687226 (Version 1)
Quarter: 2024Q4

REPORT INFORMATION
  Report Type: Spontaneous
  Country: GB (occurrence: GB)
  Receive Date: 20241202
  Receipt Date: 20241202
  Transmission Date: 20250115
  Serious: Yes (Hospitalization, Other)
  Sender: MYLAN
  Company Number: GB-002147023-PHFR2003GB01184

PATIENT
  Sex: Female

DRUGS (15)
  1. CLOZARIL [Suspect]
     Active Substance: CLOZAPINE
     Indication: Schizophrenia
     Dosage: 450 MILLIGRAM, QD (450MG/DAY)
     Route: 048
     Dates: start: 19920616
  2. CLOZARIL [Suspect]
     Active Substance: CLOZAPINE
     Dosage: 500 MILLIGRAM, QD (500MG/DAY)
     Route: 048
  3. CITALOPRAM [Concomitant]
     Active Substance: CITALOPRAM
     Indication: Depression
     Dosage: 60 MILLIGRAM, QD (60 MG, QD)
     Route: 048
     Dates: start: 200102
  4. VALPROATE SODIUM [Concomitant]
     Active Substance: VALPROATE SODIUM
     Dosage: 400 MILLIGRAM, BID (400 MG, BID)
     Route: 048
     Dates: start: 199909
  5. LANSOPRAZOLE [Concomitant]
     Active Substance: LANSOPRAZOLE
     Dosage: 30 MILLIGRAM, QD (30MG/DAY)
     Route: 048
     Dates: start: 199909
  6. RISPERIDONE [Concomitant]
     Active Substance: RISPERIDONE
     Dosage: 2 MILLIGRAM, QD (2MG/DAY)
     Route: 048
     Dates: start: 200106
  7. DOCUSATE SODIUM [Concomitant]
     Active Substance: DOCUSATE SODIUM
     Indication: Constipation
     Dosage: 300 MILLIGRAM, QD (300 MG, QD)
     Route: 065
  8. PRAVASTATIN [Concomitant]
     Active Substance: PRAVASTATIN
     Indication: Hypercholesterolaemia
     Dosage: 20 MILLIGRAM, PM (20 MG, NOCTE)
     Route: 048
  9. SENNA [Concomitant]
     Active Substance: SENNA LEAF\SENNOSIDES\SENNOSIDES A AND B
     Dosage: 2 DOSAGE FORM, PM (2 TABS NOCTE)
     Route: 048
  10. RABEPRAZOLE [Concomitant]
     Active Substance: RABEPRAZOLE
     Indication: Peptic ulcer
     Dosage: 20 MILLIGRAM, BID (20 MG, BID)
     Route: 048
  11. BISOPROLOL [Concomitant]
     Active Substance: BISOPROLOL
     Dosage: 2.5 MILLIGRAM, PM (2.5 MG NOCTE)
     Route: 048
  12. NITROGLYCERIN [Concomitant]
     Active Substance: NITROGLYCERIN
     Dosage: UNK, PRN
     Route: 065
  13. SODIUM FEREDETATE [Concomitant]
     Active Substance: SODIUM FEREDETATE
     Dosage: 10 MILLIGRAM, TID (10 MG, TID)
     Route: 048
  14. GAVISCON [Concomitant]
     Active Substance: ALUMINUM HYDROXIDE\MAGNESIUM CARBONATE
     Dosage: 15 MILLILITER, PM (15 ML NOCTE)
     Route: 048
  15. AMISULPRIDE [Concomitant]
     Active Substance: AMISULPRIDE
     Dosage: UNK
     Route: 065

REACTIONS (11)
  - Electrocardiogram ST segment depression [Not Recovered/Not Resolved]
  - Electrocardiogram T wave inversion [Not Recovered/Not Resolved]
  - Acute coronary syndrome [Recovered/Resolved with Sequelae]
  - Circulatory collapse [Recovered/Resolved with Sequelae]
  - Sinus tachycardia [Recovered/Resolved with Sequelae]
  - Troponin T increased [Recovered/Resolved with Sequelae]
  - Electrocardiogram QT prolonged [Not Recovered/Not Resolved]
  - Electrocardiogram abnormal [Unknown]
  - Angina pectoris [Unknown]
  - Chest pain [Unknown]
  - Seizure [Unknown]
